FAERS Safety Report 11999129 (Version 3)
Quarter: 2016Q1

REPORT INFORMATION
  Report Type: Report from Study
  Country: CA (occurrence: CA)
  Receive Date: 20160204
  Receipt Date: 20160310
  Transmission Date: 20160526
  Serious: Yes (Other)
  Sender: FDA-Public Use
  Company Number: CA-ROCHE-ITM201505IM016980

PATIENT
  Age: 70 Year
  Sex: Female

DRUGS (18)
  1. NYSTATIN. [Concomitant]
     Active Substance: NYSTATIN
  2. PIROXICAM. [Concomitant]
     Active Substance: PIROXICAM
  3. ESBRIET [Suspect]
     Active Substance: PIRFENIDONE
     Route: 048
     Dates: start: 20141127
  4. IMOVANE [Concomitant]
     Active Substance: ZOPICLONE
  5. ACETYLCYSTEINE. [Concomitant]
     Active Substance: ACETYLCYSTEINE
  6. ESBRIET [Suspect]
     Active Substance: PIRFENIDONE
     Route: 048
     Dates: start: 20141204
  7. XARELTO [Concomitant]
     Active Substance: RIVAROXABAN
     Dosage: 20 UNITS NOT REPORTED
     Route: 065
  8. TYLENOL WITH CODEINE [Concomitant]
     Active Substance: ACETAMINOPHEN\CODEINE PHOSPHATE
  9. TUMS [Concomitant]
     Active Substance: CALCIUM CARBONATE
  10. GAVISCON (CANADA) [Concomitant]
  11. VITAMIN D3 [Concomitant]
     Active Substance: CHOLECALCIFEROL
  12. ATACAND [Concomitant]
     Active Substance: CANDESARTAN CILEXETIL
  13. PAXIL (CANADA) [Concomitant]
  14. ESBRIET [Suspect]
     Active Substance: PIRFENIDONE
     Indication: IDIOPATHIC PULMONARY FIBROSIS
     Route: 048
     Dates: start: 20141120
  15. TRAZODONE [Concomitant]
     Active Substance: TRAZODONE HYDROCHLORIDE
     Dosage: 50 UNITS NOT REPORTED
     Route: 065
  16. LOSEC [Concomitant]
     Active Substance: OMEPRAZOLE
  17. OXYGEN. [Concomitant]
     Active Substance: OXYGEN
  18. PREVACID [Concomitant]
     Active Substance: LANSOPRAZOLE

REACTIONS (15)
  - Diarrhoea [Not Recovered/Not Resolved]
  - Arthralgia [Not Recovered/Not Resolved]
  - Arthritis [Not Recovered/Not Resolved]
  - Abdominal pain [Not Recovered/Not Resolved]
  - Mucous stools [Not Recovered/Not Resolved]
  - Back disorder [Not Recovered/Not Resolved]
  - Oral pain [Not Recovered/Not Resolved]
  - Rash [Not Recovered/Not Resolved]
  - Gastric disorder [Not Recovered/Not Resolved]
  - Fibromyalgia [Not Recovered/Not Resolved]
  - Dyspepsia [Not Recovered/Not Resolved]
  - Pain [Not Recovered/Not Resolved]
  - Myalgia [Not Recovered/Not Resolved]
  - Gastroenteritis viral [Unknown]
  - Faeces discoloured [Not Recovered/Not Resolved]

NARRATIVE: CASE EVENT DATE: 201505
